FAERS Safety Report 4385726-0 (Version None)
Quarter: 2004Q2

REPORT INFORMATION
  Report Type: 
  Country: None (occurrence: None)
  Receive Date: 20040623
  Receipt Date: 20040604
  Transmission Date: 20050107
  Serious: Yes (Hospitalization, Other)
  Sender: FDA-Public Use
  Company Number: CA_040406864

PATIENT
  Age: 63 Year
  Sex: Female

DRUGS (4)
  1. ZYPREXA [Suspect]
     Indication: SCHIZOPHRENIA
     Dosage: 20 MG
     Dates: start: 19980401, end: 20040501
  2. MEVACOR [Concomitant]
  3. LOXAPINE [Concomitant]
  4. ATIVAN [Concomitant]

REACTIONS (1)
  - ANGLE CLOSURE GLAUCOMA [None]
